FAERS Safety Report 16981325 (Version 1)
Quarter: 2019Q4

REPORT INFORMATION
  Report Type: Spontaneous
  Country: FR (occurrence: FR)
  Receive Date: 20191031
  Receipt Date: 20191031
  Transmission Date: 20200122
  Serious: Yes (Hospitalization, Other)
  Sender: FDA-Public Use
  Company Number: FR-LUNDBECK-DKLU3006673

PATIENT
  Age: 49 Year
  Sex: Male

DRUGS (6)
  1. AMISULPRIDE [Suspect]
     Active Substance: AMISULPRIDE
     Indication: MEDICATION ERROR
     Route: 048
     Dates: start: 20190930, end: 20190930
  2. URBANYL [Suspect]
     Active Substance: CLOBAZAM
     Indication: ANXIETY
     Dosage: NON ADMINISTERED
     Route: 048
     Dates: start: 20190930, end: 20190930
  3. LAMOTRIGINE. [Suspect]
     Active Substance: LAMOTRIGINE
     Indication: EPILEPSY
     Dosage: NOT ADMINISTERED
     Route: 048
  4. VALPROATE SODIUM/VALPROIC ACID [Suspect]
     Active Substance: VALPROIC ACID
     Indication: MEDICATION ERROR
     Route: 048
     Dates: start: 20190930, end: 20190930
  5. CLONAZEPAM. [Suspect]
     Active Substance: CLONAZEPAM
     Indication: MEDICATION ERROR
     Route: 048
     Dates: start: 20190930, end: 20190930
  6. CARBAMAZEPINE. [Suspect]
     Active Substance: CARBAMAZEPINE
     Indication: MEDICATION ERROR
     Route: 048
     Dates: start: 20190930, end: 20190930

REACTIONS (4)
  - Fall [Recovered/Resolved]
  - Balance disorder [Recovered/Resolved]
  - Altered state of consciousness [Recovered/Resolved]
  - Medication error [Unknown]

NARRATIVE: CASE EVENT DATE: 20190930
